FAERS Safety Report 20660930 (Version 3)
Quarter: 2025Q3

REPORT INFORMATION
  Report Type: Spontaneous
  Country: US (occurrence: US)
  Receive Date: 20220331
  Receipt Date: 20250723
  Transmission Date: 20251020
  Serious: Yes (Other)
  Sender: BIOMARIN
  Company Number: US-SA-SAC20220323001606

PATIENT
  Age: 21 Year
  Sex: Male

DRUGS (3)
  1. LARONIDASE [Suspect]
     Active Substance: LARONIDASE
     Indication: Mucopolysaccharidosis I
     Dosage: 31.9 MG, QW
     Dates: start: 201102
  2. LARONIDASE [Suspect]
     Active Substance: LARONIDASE
     Dosage: 32 (UNITS UNSEPCIFIED), QW
  3. LARONIDASE [Suspect]
     Active Substance: LARONIDASE

REACTIONS (6)
  - Spinal cord compression [Unknown]
  - Spinal fusion surgery [Unknown]
  - Mental disorder [Not Recovered/Not Resolved]
  - Jaw disorder [Unknown]
  - Meningeal thickening [Unknown]
  - Respiratory disorder [Not Recovered/Not Resolved]

NARRATIVE: CASE EVENT DATE: 20140101
